FAERS Safety Report 19685946 (Version 1)
Quarter: 2021Q3

REPORT INFORMATION
  Report Type: Spontaneous
  Country: US (occurrence: US)
  Receive Date: 20210811
  Receipt Date: 20210811
  Transmission Date: 20211014
  Serious: Yes (Hospitalization)
  Sender: FDA-Public Use
  Company Number: US-MYLANLABS-2021M1050354

PATIENT
  Age: 21 Year
  Sex: Female

DRUGS (26)
  1. ERYTHROMYCIN. [Suspect]
     Active Substance: ERYTHROMYCIN
     Indication: SYMPTOMATIC TREATMENT
     Route: 065
  2. METOCLOPRAMIDE. [Suspect]
     Active Substance: METOCLOPRAMIDE
     Indication: GUILLAIN-BARRE SYNDROME
  3. TRAMADOL. [Suspect]
     Active Substance: TRAMADOL
     Indication: GUILLAIN-BARRE SYNDROME
  4. IMMUNOGLOBULIN                     /00025201/ [Suspect]
     Active Substance: HUMAN IMMUNOGLOBULIN G
     Indication: GUILLAIN-BARRE SYNDROME
     Route: 042
  5. METOCLOPRAMIDE. [Suspect]
     Active Substance: METOCLOPRAMIDE
     Indication: SYMPTOMATIC TREATMENT
     Route: 065
  6. PANTOPRAZOLE [Suspect]
     Active Substance: PANTOPRAZOLE
     Indication: GUILLAIN-BARRE SYNDROME
  7. PREGABALIN. [Suspect]
     Active Substance: PREGABALIN
     Indication: SYMPTOMATIC TREATMENT
     Route: 065
  8. PANTOPRAZOLE [Suspect]
     Active Substance: PANTOPRAZOLE
     Indication: SYMPTOMATIC TREATMENT
     Route: 065
  9. PROMETHAZINE [Suspect]
     Active Substance: PROMETHAZINE HYDROCHLORIDE
     Indication: GUILLAIN-BARRE SYNDROME
     Route: 065
  10. SCOPOLAMINE [Suspect]
     Active Substance: SCOPOLAMINE
     Indication: SYMPTOMATIC TREATMENT
  11. TRAMADOL. [Suspect]
     Active Substance: TRAMADOL
     Indication: SYMPTOMATIC TREATMENT
     Route: 065
  12. IMMUNOGLOBULIN                     /00025201/ [Suspect]
     Active Substance: HUMAN IMMUNOGLOBULIN G
     Indication: SYMPTOMATIC TREATMENT
  13. DIPHENHYDRAMINE. [Suspect]
     Active Substance: DIPHENHYDRAMINE
     Indication: SYMPTOMATIC TREATMENT
     Route: 065
  14. FAMOTIDINE. [Suspect]
     Active Substance: FAMOTIDINE
     Indication: GUILLAIN-BARRE SYNDROME
  15. PROMETHAZINE [Suspect]
     Active Substance: PROMETHAZINE HYDROCHLORIDE
     Indication: SYMPTOMATIC TREATMENT
  16. SCOPOLAMINE [Suspect]
     Active Substance: SCOPOLAMINE
     Indication: GUILLAIN-BARRE SYNDROME
     Route: 065
  17. DICYCLOVERINE [Suspect]
     Active Substance: DICYCLOMINE HYDROCHLORIDE
     Indication: SYMPTOMATIC TREATMENT
     Route: 065
  18. DIPHENHYDRAMINE. [Suspect]
     Active Substance: DIPHENHYDRAMINE
     Indication: GUILLAIN-BARRE SYNDROME
  19. PREGABALIN. [Suspect]
     Active Substance: PREGABALIN
     Indication: GUILLAIN-BARRE SYNDROME
  20. DICYCLOVERINE [Suspect]
     Active Substance: DICYCLOMINE HYDROCHLORIDE
     Indication: GUILLAIN-BARRE SYNDROME
  21. ERYTHROMYCIN. [Suspect]
     Active Substance: ERYTHROMYCIN
     Indication: GUILLAIN-BARRE SYNDROME
  22. ONDANSETRON [Suspect]
     Active Substance: ONDANSETRON
     Indication: GUILLAIN-BARRE SYNDROME
     Route: 065
  23. ONDANSETRON [Suspect]
     Active Substance: ONDANSETRON
     Indication: SYMPTOMATIC TREATMENT
  24. ACETAMINOPHEN. [Suspect]
     Active Substance: ACETAMINOPHEN
     Indication: SYMPTOMATIC TREATMENT
     Route: 065
  25. ACETAMINOPHEN. [Suspect]
     Active Substance: ACETAMINOPHEN
     Indication: GUILLAIN-BARRE SYNDROME
  26. FAMOTIDINE. [Suspect]
     Active Substance: FAMOTIDINE
     Indication: SYMPTOMATIC TREATMENT
     Route: 065

REACTIONS (1)
  - Treatment failure [Unknown]
